FAERS Safety Report 9701903 (Version 1)
Quarter: 2013Q4

REPORT INFORMATION
  Report Type: Spontaneous
  Country: FR (occurrence: FR)
  Receive Date: 20131121
  Receipt Date: 20131121
  Transmission Date: 20140711
  Serious: Yes (Hospitalization)
  Sender: FDA-Public Use
  Company Number: FR-UCBSA-103459

PATIENT
  Age: 77 Year
  Sex: Male

DRUGS (5)
  1. NEUPRO [Suspect]
     Indication: PARKINSON^S DISEASE
     Dosage: 6 MG/24HR
     Route: 062
     Dates: start: 201306, end: 20130706
  2. COVERAM [Suspect]
     Indication: HYPERTENSION
     Dosage: 5MG/5MG
     Route: 048
  3. COVERAM [Suspect]
     Indication: HYPERTENSION
     Dosage: 5MG/5MG
     Route: 048
  4. AZILECT [Suspect]
     Indication: PARKINSON^S DISEASE
     Route: 048
  5. SINEMET [Suspect]
     Indication: PARKINSON^S DISEASE
     Dosage: SCORED TABLET 100MG/10MG , 2 TABS IN MORNING-2 TABS IN NOON-2 TABS IN EVENING
     Route: 048

REACTIONS (5)
  - Malaise [Recovered/Resolved]
  - Loss of consciousness [Recovered/Resolved]
  - Orthostatic hypotension [Recovered/Resolved]
  - Troponin increased [Unknown]
  - Myoglobin blood increased [Unknown]
